FAERS Safety Report 7015178-3 (Version None)
Quarter: 2010Q3

REPORT INFORMATION
  Report Type: 
  Country: None (occurrence: None)
  Receive Date: 20100927
  Receipt Date: 20091109
  Transmission Date: 20110219
  Serious: No
  Sender: FDA-Public Use
  Company Number: US-ASTRAZENECA-2009SE25463

PATIENT
  Age: 67 Year
  Sex: Female
  Weight: 58.1 kg

DRUGS (14)
  1. ARIMIDEX [Suspect]
     Indication: BREAST CANCER
     Route: 048
  2. PRILOSEC [Concomitant]
     Indication: GASTROOESOPHAGEAL REFLUX DISEASE
  3. FEMARA [Concomitant]
  4. SALAGEN [Concomitant]
     Indication: SJOGREN'S SYNDROME
  5. LYRICA [Concomitant]
  6. RESTASIS [Concomitant]
     Indication: DRY EYE
  7. PLAQUENIL [Concomitant]
  8. INDURAL SA [Concomitant]
  9. ZANTAC [Concomitant]
     Indication: GASTROOESOPHAGEAL REFLUX DISEASE
  10. SELMA [Concomitant]
     Indication: MUSCLE SPASMS
  11. AMBIEN [Concomitant]
     Indication: SLEEP DISORDER
  12. KLONOPIN [Concomitant]
     Indication: TREMOR
  13. MOBIC [Concomitant]
  14. NORVASC [Concomitant]

REACTIONS (4)
  - DEPRESSED MOOD [None]
  - LIVER DISORDER [None]
  - OEDEMA PERIPHERAL [None]
  - PAIN [None]
